FAERS Safety Report 24446089 (Version 1)
Quarter: 2024Q4

REPORT INFORMATION
  Report Type: Spontaneous
  Country: US (occurrence: None)
  Receive Date: 20241016
  Receipt Date: 20241016
  Transmission Date: 20250115
  Serious: Yes (Life-Threatening, Hospitalization, Disabling, Congenital Anomaly, Other)
  Sender: Public
  Company Number: None

PATIENT
  Age: 39 Year
  Sex: Female
  Weight: 94.5 kg

DRUGS (3)
  1. ZOLOFT [Suspect]
     Active Substance: SERTRALINE HYDROCHLORIDE
     Indication: Depression
     Dates: start: 20120101, end: 20230724
  2. ZOLOFT [Suspect]
     Active Substance: SERTRALINE HYDROCHLORIDE
     Indication: Post-traumatic stress disorder
  3. ZOLOFT [Suspect]
     Active Substance: SERTRALINE HYDROCHLORIDE
     Indication: Anxiety

REACTIONS (7)
  - Maternal exposure during pregnancy [None]
  - Bladder disorder [None]
  - Suicidal ideation [None]
  - Foetal exposure during pregnancy [None]
  - Autism spectrum disorder [None]
  - Attention deficit hyperactivity disorder [None]
  - Impaired quality of life [None]

NARRATIVE: CASE EVENT DATE: 20230724
